FAERS Safety Report 14819597 (Version 2)
Quarter: 2018Q3

REPORT INFORMATION
  Report Type: Spontaneous
  Country: US (occurrence: US)
  Receive Date: 20180427
  Receipt Date: 20180927
  Transmission Date: 20181010
  Serious: No
  Sender: FDA-Public Use
  Company Number: US-PFIZER INC-2018170403

PATIENT
  Age: 58 Year
  Sex: Female

DRUGS (2)
  1. XELJANZ XR [Suspect]
     Active Substance: TOFACITINIB CITRATE
     Dosage: 11 MG, 1X/DAY [IN MORNING]
     Route: 048
     Dates: start: 201804
  2. TIZANIDINE. [Suspect]
     Active Substance: TIZANIDINE
     Dosage: UNK, 1X/DAY [AT BEDTIME]

REACTIONS (7)
  - Dyspepsia [Unknown]
  - Fatigue [Unknown]
  - Constipation [Unknown]
  - Anxiety [Unknown]
  - Nausea [Unknown]
  - Abdominal discomfort [Unknown]
  - Nervousness [Unknown]

NARRATIVE: CASE EVENT DATE: 20180423
